FAERS Safety Report 14544683 (Version 1)
Quarter: 2018Q1

REPORT INFORMATION
  Report Type: Spontaneous
  Country: US (occurrence: US)
  Receive Date: 20180217
  Receipt Date: 20180217
  Transmission Date: 20180509
  Serious: No
  Sender: FDA-Public Use
  Company Number: US-JNJFOC-20180206778

PATIENT
  Sex: Female
  Weight: 46.72 kg

DRUGS (1)
  1. LEVAQUIN [Suspect]
     Active Substance: LEVOFLOXACIN
     Indication: PNEUMONITIS
     Route: 048
     Dates: end: 201801

REACTIONS (2)
  - Hallucination, auditory [Unknown]
  - Hallucination, visual [Not Recovered/Not Resolved]
